FAERS Safety Report 15688713 (Version 2)
Quarter: 2019Q2

REPORT INFORMATION
  Report Type: Spontaneous
  Country: DE (occurrence: DE)
  Receive Date: 20181205
  Receipt Date: 20190621
  Transmission Date: 20190711
  Serious: Yes (Life-Threatening, Hospitalization, Other)
  Sender: FDA-Public Use
  Company Number: DE-BEH-2018095391

PATIENT
  Age: 8 Year
  Sex: Male
  Weight: 20 kg

DRUGS (6)
  1. FIBROGAMMIN [Suspect]
     Active Substance: FACTOR XIII CONCENTRATE (HUMAN)
     Dosage: 1250 IU, UNK
     Route: 042
     Dates: start: 20180822
  2. FIBROGAMMIN [Suspect]
     Active Substance: FACTOR XIII CONCENTRATE (HUMAN)
     Indication: FACTOR XIII DEFICIENCY
     Dosage: 250 IU, QMT, 1X250IU
     Route: 042
  3. FIBROGAMMIN [Suspect]
     Active Substance: FACTOR XIII CONCENTRATE (HUMAN)
     Indication: HAEMORRHAGE PROPHYLAXIS
     Dosage: 1000 IU, QMT
     Route: 042
  4. FIBROGAMMIN [Suspect]
     Active Substance: FACTOR XIII CONCENTRATE (HUMAN)
     Dosage: 1250 IU, UNK
     Route: 042
     Dates: start: 20180824
  5. FIBROGAMMIN [Suspect]
     Active Substance: FACTOR XIII CONCENTRATE (HUMAN)
     Dosage: 1250 IU, UNK
     Route: 042
     Dates: start: 20180628
  6. FIBROGAMMIN [Suspect]
     Active Substance: FACTOR XIII CONCENTRATE (HUMAN)
     Dosage: 1250 IU, UNK
     Route: 042
     Dates: start: 20180726

REACTIONS (3)
  - Drug ineffective [Unknown]
  - Factor XIII Inhibition [Recovered/Resolved]
  - Drug ineffective [Unknown]

NARRATIVE: CASE EVENT DATE: 2018
